FAERS Safety Report 9868190 (Version 3)
Quarter: 2014Q1

REPORT INFORMATION
  Report Type: Report from Study
  Country: US (occurrence: US)
  Receive Date: 20140204
  Receipt Date: 20140219
  Transmission Date: 20141002
  Serious: Yes (Other)
  Sender: FDA-Public Use
  Company Number: PHEH2013US023813

PATIENT
  Age: 49 Year
  Sex: Female
  Weight: 52.15 kg

DRUGS (7)
  1. GILENYA [Suspect]
     Indication: MULTIPLE SCLEROSIS
     Dosage: 0.5 MG, QD
     Route: 048
     Dates: start: 20131104
  2. PAXIL//PAROXETINE HYDROCHLORIDE [Concomitant]
     Dosage: 1 DF, DAILY
     Route: 048
     Dates: start: 20131211
  3. TRAMADOL [Concomitant]
     Dosage: 1 DF, BID
     Route: 048
     Dates: start: 20131211
  4. VALIUM [Concomitant]
     Dosage: 1 DF, PRN
     Route: 048
     Dates: start: 20131211
  5. VICODIN [Concomitant]
     Indication: PAIN
     Dosage: 1 DF, UNK
     Route: 048
     Dates: start: 20130115
  6. VITAMIN B COMPLEX [Concomitant]
  7. VITAMIN D3 [Concomitant]

REACTIONS (26)
  - Haematemesis [Recovering/Resolving]
  - Nausea [Recovering/Resolving]
  - Abdominal pain upper [Recovering/Resolving]
  - Abdominal discomfort [Recovering/Resolving]
  - Flatulence [Recovering/Resolving]
  - Dyspepsia [Recovering/Resolving]
  - Abdominal distension [Recovering/Resolving]
  - Vomiting [Recovering/Resolving]
  - Lhermitte^s sign [Unknown]
  - Neck pain [Unknown]
  - Balance disorder [Unknown]
  - Fatigue [Unknown]
  - Sleep disorder [Unknown]
  - Memory impairment [Unknown]
  - Appetite disorder [Unknown]
  - Tinnitus [Unknown]
  - Constipation [Recovering/Resolving]
  - Faecal incontinence [Recovering/Resolving]
  - Anxiety [Unknown]
  - Contusion [Unknown]
  - Musculoskeletal stiffness [Unknown]
  - Depression [Unknown]
  - Paraesthesia [Unknown]
  - Alopecia [Not Recovered/Not Resolved]
  - Back pain [Unknown]
  - Diarrhoea [Recovering/Resolving]
